FAERS Safety Report 8153282-7 (Version None)
Quarter: 2012Q1

REPORT INFORMATION
  Report Type: 
  Country: None (occurrence: None)
  Receive Date: 20120221
  Receipt Date: 20120216
  Transmission Date: 20120608
  Serious: Yes (Hospitalization)
  Sender: FDA-Public Use
  Company Number: DE-ROCHE-1023758

PATIENT
  Sex: Female
  Weight: 67 kg

DRUGS (5)
  1. IRINOTECAN HCL [Concomitant]
     Indication: COLON CANCER
     Dates: start: 20110926, end: 20111115
  2. AVASTIN [Suspect]
     Indication: COLON CANCER
     Route: 042
     Dates: start: 20110926, end: 20111115
  3. LEUCOVORIN CALCIUM [Concomitant]
     Indication: COLON CANCER
     Route: 042
     Dates: start: 20110926, end: 20111115
  4. FLUOROURACIL [Concomitant]
     Route: 041
     Dates: start: 20110926, end: 20111115
  5. FLUOROURACIL [Concomitant]
     Indication: COLON CANCER
     Route: 040
     Dates: start: 20110926, end: 20111115

REACTIONS (2)
  - GALLBLADDER PERFORATION [None]
  - CHOLECYSTITIS INFECTIVE [None]
